FAERS Safety Report 26170876 (Version 1)
Quarter: 2025Q4

REPORT INFORMATION
  Report Type: Spontaneous
  Country: EU (occurrence: EU)
  Receive Date: 20251217
  Receipt Date: 20251217
  Transmission Date: 20260117
  Serious: Yes (Disabling, Other)
  Sender: PFIZER
  Company Number: EU-PFIZER INC-PV202500145881

PATIENT
  Age: 29 Year
  Sex: Male

DRUGS (2)
  1. ESTRADIOL [Suspect]
     Active Substance: ESTRADIOL
     Indication: Gender reassignment therapy
     Dosage: UNK
  2. CYPROTERONE ACETATE [Suspect]
     Active Substance: CYPROTERONE ACETATE
     Indication: Gender reassignment therapy
     Dosage: UNK

REACTIONS (3)
  - Multiple sclerosis [Recovered/Resolved with Sequelae]
  - Off label use [Unknown]
  - Product use issue [Unknown]
